FAERS Safety Report 6991434-X (Version None)
Quarter: 2010Q3

REPORT INFORMATION
  Report Type: 
  Country: None (occurrence: None)
  Receive Date: 20100916
  Receipt Date: 20090826
  Transmission Date: 20110219
  Serious: No
  Sender: FDA-Public Use
  Company Number: US-WYE-H10740209

PATIENT
  Age: 50 Year
  Weight: 79.45 kg

DRUGS (8)
  1. PRISTIQ [Suspect]
     Indication: DEPRESSION
     Route: 048
     Dates: start: 20090701, end: 20090801
  2. PRINIVIL [Concomitant]
  3. TRAZODONE HCL [Concomitant]
  4. ALLEGRA [Concomitant]
  5. SINGULAIR [Concomitant]
  6. MULTI-VITAMINS [Concomitant]
  7. TOPROL-XL [Concomitant]
  8. ESTRATEST [Concomitant]

REACTIONS (1)
  - OEDEMA PERIPHERAL [None]
